FAERS Safety Report 5339083-3 (Version None)
Quarter: 2007Q2

REPORT INFORMATION
  Report Type: 
  Country: None (occurrence: None)
  Receive Date: 20070330
  Receipt Date: 20060920
  Transmission Date: 20071010
  Serious: Yes (Life-Threatening, Hospitalization)
  Sender: FDA-Public Use
  Company Number: 2006EN000169

PATIENT
  Age: 18 Year
  Sex: Male
  Weight: 78.9 kg

DRUGS (3)
  1. ONCASPAR [Suspect]
     Indication: ACUTE LYMPHOCYTIC LEUKAEMIA
     Dosage: 4650 IU; X1; IM
     Route: 030
     Dates: start: 20060801, end: 20060801
  2. ONCASPAR [Suspect]
     Indication: ACUTE LYMPHOCYTIC LEUKAEMIA
     Dosage: 4650 IU; X1; IM
     Route: 030
     Dates: start: 20060919, end: 20060919
  3. VINCRISTINE [Concomitant]

REACTIONS (5)
  - ANAPHYLACTIC REACTION [None]
  - COUGH [None]
  - RASH [None]
  - URTICARIA [None]
  - VOMITING [None]
